FAERS Safety Report 23733870 (Version 1)
Quarter: 2024Q2

REPORT INFORMATION
  Report Type: Report from Study
  Country: DE (occurrence: DE)
  Receive Date: 20240412
  Receipt Date: 20240412
  Transmission Date: 20240716
  Serious: Yes (Hospitalization)
  Sender: FDA-Public Use
  Company Number: DE-ABBVIE-5713810

PATIENT
  Age: 59 Year
  Sex: Female

DRUGS (7)
  1. RINVOQ [Suspect]
     Active Substance: UPADACITINIB
     Indication: Rheumatoid arthritis
     Route: 048
     Dates: start: 202002, end: 202109
  2. METHOTREXATE [Concomitant]
     Active Substance: METHOTREXATE
     Indication: Rheumatoid arthritis
     Dosage: START DATE: BEFORE 27 OCT 2016?STOP DATE: BETWEEN 27 OCT 2016 AND31 JAN 2017
  3. METHOTREXATE [Concomitant]
     Active Substance: METHOTREXATE
     Indication: Rheumatoid arthritis
     Dosage: START DATE: BETWEEN 27 OCT 2016 AND31 JAN 2017?STOP DATE: BETWEEN 01 NOV 2017 AND 19 MAR 2018
  4. METHOTREXATE [Concomitant]
     Active Substance: METHOTREXATE
     Indication: Rheumatoid arthritis
     Dosage: START DATE: BETWEEN 01 NOV 2017 AND 19 MAR 2018?STOP DATE: BETWEEN 13 NOV 2018 AND 02 APR 2019
  5. METHOTREXATE [Concomitant]
     Active Substance: METHOTREXATE
     Indication: Rheumatoid arthritis
     Dosage: START DATE: BETWEEN11 OCT 2021 AND 02 MAY 2022?STOP DATE: BETWEEN13 JUN 2023 AND18 SEP 2023
  6. HYDROXYCHLOROQUINE [Concomitant]
     Active Substance: HYDROXYCHLOROQUINE
     Indication: Rheumatoid arthritis
     Dosage: START DATE: BETWEEN 02 MAY 2022 AND 29 SEP 2022?STOP DATE: BETWEEN 13 JUN 2023 AND 18 SEP 2023
  7. SULFASALAZINE [Concomitant]
     Active Substance: SULFASALAZINE
     Indication: Rheumatoid arthritis
     Dosage: START DATE: BETWEEN 02 MAY 2022 AND 29 SEP 2022?STOP DATE : BETWEEN13 JUN 2023 AND 18 SEP 2023

REACTIONS (1)
  - Urinary tract disorder [Recovered/Resolved]

NARRATIVE: CASE EVENT DATE: 20230223
